FAERS Safety Report 5201922-4 (Version None)
Quarter: 2006Q4

REPORT INFORMATION
  Report Type: 
  Country: None (occurrence: None)
  Receive Date: 20061011
  Receipt Date: 20060217
  Transmission Date: 20070319
  Serious: Yes (Other)
  Sender: FDA-Public Use
  Company Number: 2006-02-1310

PATIENT
  Sex: Female

DRUGS (1)
  1. ISOSORBIDE MONONITRATE EXTENDED RELEASE TABLET [Suspect]
     Indication: DRUG USE FOR UNKNOWN INDICATION
     Dosage: 30 MG ORAL
     Route: 048

REACTIONS (1)
  - CARDIAC FAILURE CONGESTIVE [None]
